FAERS Safety Report 8418098-2 (Version None)
Quarter: 2012Q2

REPORT INFORMATION
  Report Type: 
  Country: None (occurrence: None)
  Receive Date: 20120607
  Receipt Date: 20120530
  Transmission Date: 20120825
  Serious: Yes (Other)
  Sender: FDA-Public Use
  Company Number: US-JNJFOC-20120402522

PATIENT
  Sex: Male
  Weight: 81.65 kg

DRUGS (3)
  1. SUDAFED CONGESTION MAXIMUM STRENGTH [Suspect]
     Indication: UPPER-AIRWAY COUGH SYNDROME
     Route: 048
     Dates: start: 20120329, end: 20120329
  2. SUDAFED CONGESTION MAXIMUM STRENGTH [Suspect]
     Route: 048
     Dates: start: 20120328, end: 20120328
  3. SUDAFED CONGESTION MAXIMUM STRENGTH [Suspect]
     Route: 048
     Dates: start: 20120330, end: 20120330

REACTIONS (4)
  - PYREXIA [None]
  - PAIN [None]
  - CHILLS [None]
  - URINARY RETENTION [None]
